FAERS Safety Report 5515687-X (Version None)
Quarter: 2007Q4

REPORT INFORMATION
  Report Type: 
  Country: None (occurrence: None)
  Receive Date: 20071113
  Receipt Date: 20070830
  Transmission Date: 20080405
  Serious: No
  Sender: FDA-Public Use
  Company Number: A0676127A

PATIENT
  Age: 83 Year
  Sex: Female

DRUGS (5)
  1. COREG [Suspect]
     Dosage: 6.25MG TWICE PER DAY
     Route: 048
     Dates: start: 20061101
  2. PREMARIN [Concomitant]
  3. TRAMADOL [Concomitant]
  4. PLAVIX [Concomitant]
  5. PRIMIDONE [Concomitant]

REACTIONS (3)
  - CHEST DISCOMFORT [None]
  - FOOD POISONING [None]
  - ROAD TRAFFIC ACCIDENT [None]
